FAERS Safety Report 17121058 (Version 1)
Quarter: 2019Q4

REPORT INFORMATION
  Report Type: Spontaneous
  Country: ES (occurrence: ES)
  Receive Date: 20191206
  Receipt Date: 20191206
  Transmission Date: 20200122
  Serious: Yes (Congenital Anomaly, Other)
  Sender: FDA-Public Use
  Company Number: ES-MYLANLABS-2019M1118986

PATIENT
  Age: 25 Day
  Sex: Female

DRUGS (6)
  1. VAXIGRIP [Concomitant]
     Active Substance: INFLUENZA VIRUS VACCINE
     Indication: IMMUNISATION
     Dosage: 0.5 MILLILITER, TOTAL
     Route: 064
     Dates: start: 20181029, end: 20181029
  2. YODOCEFOL [Concomitant]
     Active Substance: CYANOCOBALAMIN\FOLIC ACID\POTASSIUM IODIDE
     Indication: PRODUCT USED FOR UNKNOWN INDICATION
     Dosage: 1 DOSAGE FORM, QD
     Route: 064
     Dates: start: 20181025
  3. SERTRALINE [Suspect]
     Active Substance: SERTRALINE HYDROCHLORIDE
     Indication: SOCIAL ANXIETY DISORDER
     Route: 064
     Dates: start: 20180809, end: 20190616
  4. INFANRIX [Concomitant]
     Active Substance: DIPHTHERIA AND TETANUS TOXOIDS AND ACELLULAR PERTUSSIS VACCINE ADSORBED PF
     Indication: IMMUNISATION
     Dosage: 0.5 MILLILITER, TOTAL
     Route: 064
     Dates: start: 20190425, end: 20190425
  5. DICLOFENACO                        /00372301/ [Concomitant]
     Active Substance: DICLOFENAC
     Indication: MIGRAINE
     Dosage: 75 MILLIGRAM, TOTAL
     Route: 064
     Dates: start: 20190302, end: 20190302
  6. FERPLEX [Concomitant]
     Indication: PRODUCT USED FOR UNKNOWN INDICATION
     Dosage: 40 MILLIGRAM, BID
     Route: 064
     Dates: start: 20180123

REACTIONS (2)
  - Femur-fibula-ulna complex [Not Recovered/Not Resolved]
  - Foetal exposure during pregnancy [Recovered/Resolved]

NARRATIVE: CASE EVENT DATE: 201808
